FAERS Safety Report 7198387-2 (Version None)
Quarter: 2010Q4

REPORT INFORMATION
  Report Type: 
  Country: None (occurrence: None)
  Receive Date: 20101223
  Receipt Date: 20101223
  Transmission Date: 20110411
  Serious: Yes (Death)
  Sender: FDA-Public Use
  Company Number: None

PATIENT
  Age: 67 Year
  Sex: Male
  Weight: 92 kg

DRUGS (16)
  1. PROTAMINE SULFATE [Suspect]
     Indication: HEPARIN NEUTRALISATION THERAPY
     Dates: start: 20100812
  2. BUPROPION [Concomitant]
  3. ADVAIR DISKUS 100/50 [Concomitant]
  4. ASTELIN [Concomitant]
  5. ESOMEPRAZOLE [Concomitant]
  6. FLONASE [Concomitant]
  7. ISMN [Concomitant]
  8. LISINOPRIL [Concomitant]
  9. METOPROLOL XL [Concomitant]
  10. NIACIN/SIMVASTATIN [Concomitant]
  11. LOVAZA [Concomitant]
  12. RANOLOZINE [Concomitant]
  13. ENOXAPARIN SODIUM [Concomitant]
  14. ESCITALOPRAM [Concomitant]
  15. IOVERSOL (OPTIRAY) [Concomitant]
  16. CEFAZOLIN [Concomitant]

REACTIONS (3)
  - DILATATION VENTRICULAR [None]
  - RIGHT VENTRICULAR FAILURE [None]
  - VENTRICULAR TACHYCARDIA [None]
